FAERS Safety Report 4823237-6 (Version None)
Quarter: 2005Q4

REPORT INFORMATION
  Report Type: 
  Country: None (occurrence: None)
  Receive Date: 20051108
  Receipt Date: 20051108
  Transmission Date: 20060501
  Serious: Yes (Disabling)
  Sender: FDA-Public Use
  Company Number: None

PATIENT
  Age: 50 Year
  Sex: Female
  Weight: 72.1219 kg

DRUGS (1)
  1. DEPO-PROVERA [Suspect]
     Indication: CONTRACEPTION
     Dosage: 1 INJECTION  EVERY 12 WEEKS
     Dates: start: 19970104, end: 20051012

REACTIONS (3)
  - IMPAIRED HEALING [None]
  - OSTEOPOROSIS [None]
  - STRESS FRACTURE [None]
